FAERS Safety Report 7622359-4 (Version None)
Quarter: 2011Q3

REPORT INFORMATION
  Report Type: 
  Country: None (occurrence: None)
  Receive Date: 20110711
  Receipt Date: 20110704
  Transmission Date: 20111222
  Serious: Yes (Hospitalization)
  Sender: FDA-Public Use
  Company Number: GB-ACCORD-009788

PATIENT
  Sex: Female
  Weight: 95 kg

DRUGS (13)
  1. DOXYCYCLINE [Concomitant]
  2. FOLIC ACID [Concomitant]
  3. PREDNISOLONE [Concomitant]
  4. MYCOPHENOLATE MOFETIL [Suspect]
     Indication: WEGENER'S GRANULOMATOSIS
     Dosage: 1.00-G-3.00 TIMES PER-1.0DAYS
     Dates: start: 20090101
  5. ENALAPRIL MALEATE [Concomitant]
  6. OMEPRAZOLE [Concomitant]
  7. SODIUM BICARBONATE IN PLASTIC CONTAINER [Concomitant]
  8. CANDESARTAN CILEXETIL [Concomitant]
  9. CALCICHEW(CALCICHEW) [Concomitant]
  10. METHOTREXATE [Concomitant]
  11. WARFARIN SODIUM [Concomitant]
  12. DAPSONE [Concomitant]
  13. ONDANSETRON [Concomitant]

REACTIONS (3)
  - OFF LABEL USE [None]
  - CONDITION AGGRAVATED [None]
  - WEGENER'S GRANULOMATOSIS [None]
